FAERS Safety Report 6296752-9 (Version None)
Quarter: 2009Q3

REPORT INFORMATION
  Report Type: 
  Country: None (occurrence: None)
  Receive Date: 20090804
  Receipt Date: 20090727
  Transmission Date: 20100115
  Serious: Yes (Other)
  Sender: FDA-Public Use
  Company Number: NSADSS2002005899

PATIENT
  Age: 52 Year
  Sex: Female

DRUGS (11)
  1. REMICADE [Suspect]
     Route: 041
  2. REMICADE [Suspect]
     Indication: RHEUMATOID ARTHRITIS
     Route: 041
  3. CORTICOSTEROID NOS [Suspect]
     Indication: DRUG USE FOR UNKNOWN INDICATION
  4. CALCIUM/VITAMIN D [Concomitant]
  5. AMITRIPTYLINE HCL [Concomitant]
  6. NONSTEROIDAL ANTIFLAMMATORY [Concomitant]
  7. AZATHIOPRINE [Concomitant]
  8. TRICYCLIC ANTIDEPRESSANTS [Concomitant]
  9. AZITHROMYCIN [Concomitant]
  10. METHOTREXATE [Concomitant]
  11. ANTHELMINTICS [Concomitant]

REACTIONS (1)
  - TUBERCULOSIS [None]
